FAERS Safety Report 6367888-9 (Version None)
Quarter: 2009Q3

REPORT INFORMATION
  Report Type: 
  Country: None (occurrence: None)
  Receive Date: 20090922
  Receipt Date: 20090909
  Transmission Date: 20100115
  Serious: Yes (Hospitalization)
  Sender: FDA-Public Use
  Company Number: US-BIOGENIDEC-2009BI026820

PATIENT
  Age: 41 Year
  Sex: Female

DRUGS (3)
  1. TYSABRI [Suspect]
     Indication: MULTIPLE SCLEROSIS
     Route: 042
     Dates: start: 20080731, end: 20080828
  2. BENADRYL [Suspect]
     Indication: ANAPHYLACTIC SHOCK
     Route: 042
     Dates: start: 20080828
  3. SOLU-CORTEF [Suspect]
     Indication: ANAPHYLACTIC SHOCK

REACTIONS (1)
  - ANAPHYLACTIC SHOCK [None]
